FAERS Safety Report 14194829 (Version 1)
Quarter: 2017Q4

REPORT INFORMATION
  Report Type: Spontaneous
  Country: US (occurrence: US)
  Receive Date: 20171116
  Receipt Date: 20171116
  Transmission Date: 20180321
  Serious: Yes (Death)
  Sender: FDA-Public Use
  Company Number: US-ROCHE-2026923

PATIENT
  Sex: Male

DRUGS (6)
  1. ACETYLCYSTEINE. [Concomitant]
     Active Substance: ACETYLCYSTEINE
  2. OMEPRAZOLE. [Concomitant]
     Active Substance: OMEPRAZOLE
  3. FINASTERIDE. [Concomitant]
     Active Substance: FINASTERIDE
  4. ESBRIET [Suspect]
     Active Substance: PIRFENIDONE
     Indication: COUGH
     Dosage: WITH MEALS
     Route: 048
     Dates: start: 20170223
  5. ZOCOR [Concomitant]
     Active Substance: SIMVASTATIN
  6. TESSALON [Concomitant]
     Active Substance: BENZONATATE

REACTIONS (1)
  - Death [Fatal]
